FAERS Safety Report 10017665 (Version 1)
Quarter: 2014Q1

REPORT INFORMATION
  Report Type: Spontaneous
  Country: US (occurrence: US)
  Receive Date: 20140318
  Receipt Date: 20140318
  Transmission Date: 20141002
  Serious: No
  Sender: FDA-Public Use
  Company Number: 2014SP000763

PATIENT
  Sex: Female

DRUGS (1)
  1. LATUDA [Suspect]
     Route: 048
     Dates: start: 2014

REACTIONS (1)
  - Coagulation test abnormal [Unknown]
